FAERS Safety Report 14141552 (Version 1)
Quarter: 2017Q4

REPORT INFORMATION
  Report Type: Spontaneous
  Country: US (occurrence: US)
  Receive Date: 20171028
  Receipt Date: 20171028
  Transmission Date: 20180321
  Serious: No
  Sender: FDA-Public Use
  Company Number: None

PATIENT
  Age: 64 Year
  Sex: Female

DRUGS (1)
  1. FENTANYL. [Suspect]
     Active Substance: FENTANYL
     Dosage: OTHER FREQUENCY:EVERY 48 HOURS;?25 UG/HR MICROGRAMS PER HOUR TOPICAL
     Route: 061
     Dates: start: 20170926, end: 20171026

REACTIONS (2)
  - Application site erythema [None]
  - Application site rash [None]

NARRATIVE: CASE EVENT DATE: 20171028
